FAERS Safety Report 13060705 (Version 1)
Quarter: 2016Q4

REPORT INFORMATION
  Report Type: Spontaneous
  Country: BR (occurrence: BR)
  Receive Date: 20161225
  Receipt Date: 20161225
  Transmission Date: 20170207
  Serious: Yes (Life-Threatening, Hospitalization, Other)
  Sender: FDA-Public Use
  Company Number: BR-ASTRAZENECA-2016SF33372

PATIENT
  Age: 13 Year
  Sex: Female

DRUGS (8)
  1. RETEMIC [Suspect]
     Active Substance: OXYBUTYNIN CHLORIDE
     Dosage: ONCE/SINGLE ADMINISTRATION
     Route: 048
     Dates: start: 20161215, end: 20161215
  2. AMPHETAMINE [Suspect]
     Active Substance: AMPHETAMINE
     Dosage: ONCE/SINGLE ADMINISTRATION
     Route: 048
     Dates: start: 20161215, end: 20161215
  3. DORFLEX [Suspect]
     Active Substance: CAFFEINE\DIPYRONE\ORPHENADRINE
     Dosage: ONCE/SINGLE ADMINISTRATION
     Route: 048
     Dates: start: 20161215, end: 20161215
  4. NIMESULIDE [Suspect]
     Active Substance: NIMESULIDE
     Dosage: ONCE/SINGLE ADMINISTRATION
     Route: 048
     Dates: start: 20161215, end: 20161215
  5. SELOZOK [Suspect]
     Active Substance: METOPROLOL SUCCINATE
     Dosage: ONCE/SINGLE ADMINISTRATION
     Route: 048
     Dates: start: 20161215, end: 20161215
  6. LEVOTHYROXINE. [Suspect]
     Active Substance: LEVOTHYROXINE
     Dosage: ONCE/SINGLE ADMINISTRATION
     Route: 048
     Dates: start: 20161215, end: 20161215
  7. LOSARTAN+AMLODIPINE+HYDROCHLOROTHIAZIDE [Suspect]
     Active Substance: AMLODIPINE BESYLATE\HYDROCHLOROTHIAZIDE\LOSARTAN
     Dosage: ONCE/SINGLE ADMINISTRATION
     Route: 048
     Dates: start: 20161215, end: 20161215
  8. SERTRALINE [Suspect]
     Active Substance: SERTRALINE HYDROCHLORIDE
     Dosage: ONCE/SINGLE ADMINISTRATION
     Route: 048
     Dates: start: 20161215, end: 20161215

REACTIONS (4)
  - Dizziness [Not Recovered/Not Resolved]
  - Nausea [Not Recovered/Not Resolved]
  - Suicide attempt [Recovered/Resolved]
  - Tachycardia [Not Recovered/Not Resolved]

NARRATIVE: CASE EVENT DATE: 20161215
